FAERS Safety Report 13948859 (Version 6)
Quarter: 2018Q1

REPORT INFORMATION
  Report Type: Report from Study
  Country: ES (occurrence: ES)
  Receive Date: 20170908
  Receipt Date: 20180220
  Transmission Date: 20180508
  Serious: Yes (Hospitalization)
  Sender: FDA-Public Use
  Company Number: ES-SA-2017SA161394

PATIENT
  Age: 36 Year
  Sex: Female
  Weight: 52 kg

DRUGS (2)
  1. LEMTRADA [Suspect]
     Active Substance: ALEMTUZUMAB
     Indication: RELAPSING-REMITTING MULTIPLE SCLEROSIS
     Dosage: 60 MG/YEAR
     Route: 041
     Dates: start: 20160816, end: 20160819
  2. LEMTRADA [Suspect]
     Active Substance: ALEMTUZUMAB
     Indication: RELAPSING-REMITTING MULTIPLE SCLEROSIS
     Dosage: 60 MG/YEAR
     Route: 041
     Dates: start: 20160822, end: 20160822

REACTIONS (10)
  - Dizziness [Recovered/Resolved]
  - Stress [Recovering/Resolving]
  - Back pain [Recovered/Resolved]
  - Pyrexia [Recovered/Resolved]
  - Vomiting [Recovered/Resolved]
  - Vertigo [Recovered/Resolved]
  - Autoimmune thyroiditis [Not Recovered/Not Resolved]
  - Headache [Recovered/Resolved]
  - Vomiting [Recovered/Resolved]
  - Meningitis viral [Recovered/Resolved]

NARRATIVE: CASE EVENT DATE: 20170321
